FAERS Safety Report 4505296-3 (Version None)
Quarter: 2004Q4

REPORT INFORMATION
  Report Type: 
  Country: None (occurrence: None)
  Receive Date: 20041116
  Receipt Date: 20041103
  Transmission Date: 20050328
  Serious: Yes (Hospitalization, Other)
  Sender: FDA-Public Use
  Company Number: 2004088214

PATIENT
  Age: 74 Year
  Sex: Male

DRUGS (1)
  1. LOPID [Suspect]
     Indication: HYPERCHOLESTEROLAEMIA
     Dosage: (DAILY), ORAL
     Route: 048
     Dates: start: 20000101, end: 20040715

REACTIONS (5)
  - ABDOMINAL PAIN [None]
  - BLOOD PRESSURE INCREASED [None]
  - BODY TEMPERATURE INCREASED [None]
  - HEPATIC STEATOSIS [None]
  - PANCREATITIS [None]
